FAERS Safety Report 7518791-X (Version None)
Quarter: 2011Q2

REPORT INFORMATION
  Report Type: 
  Country: None (occurrence: None)
  Receive Date: 20110602
  Receipt Date: 20110526
  Transmission Date: 20111010
  Serious: No
  Sender: FDA-Public Use
  Company Number: US-PFIZER INC-2011115420

PATIENT
  Sex: Female
  Weight: 63.492 kg

DRUGS (3)
  1. GLUCOPHAGE XR [Concomitant]
     Indication: TYPE 2 DIABETES MELLITUS
     Dosage: 500 MG, DAILY
     Route: 048
  2. OXYGEN [Concomitant]
     Indication: HEART RATE INCREASED
     Dosage: UNK
     Dates: start: 19730101
  3. AMIODARONE HCL [Suspect]
     Indication: HEART RATE INCREASED
     Dosage: 200 MG, 2X/DAY
     Route: 048
     Dates: start: 20100813

REACTIONS (4)
  - HYPOAESTHESIA [None]
  - WEIGHT DECREASED [None]
  - LOCAL SWELLING [None]
  - SKIN ATROPHY [None]
